FAERS Safety Report 21434288 (Version 3)
Quarter: 2024Q1

REPORT INFORMATION
  Report Type: Other
  Country: DE (occurrence: None)
  Receive Date: 20221010
  Receipt Date: 20240326
  Transmission Date: 20240410
  Serious: Yes (Hospitalization)
  Sender: FDA-Public Use
  Company Number: DE-ROCHE-3195645

PATIENT
  Age: 33 Year
  Sex: Male
  Weight: 65 kg

DRUGS (12)
  1. OCREVUS [Suspect]
     Active Substance: OCRELIZUMAB
     Indication: Primary progressive multiple sclerosis
     Route: 042
     Dates: start: 20190305, end: 20190319
  2. OCREVUS [Suspect]
     Active Substance: OCRELIZUMAB
     Route: 042
     Dates: start: 20190903
  3. OCREVUS [Suspect]
     Active Substance: OCRELIZUMAB
     Route: 042
     Dates: start: 20220913, end: 20220913
  4. OCREVUS [Suspect]
     Active Substance: OCRELIZUMAB
     Route: 041
     Dates: start: 20230914, end: 20230914
  5. COMIRNATY (TOZINAMERAN) [Concomitant]
     Active Substance: TOZINAMERAN
     Route: 030
     Dates: start: 20220111, end: 20220111
  6. COMIRNATY (TOZINAMERAN) [Concomitant]
     Active Substance: TOZINAMERAN
     Route: 030
     Dates: start: 20220831, end: 20220831
  7. ENGERIX-B [Concomitant]
     Active Substance: HEPATITIS B VIRUS SUBTYPE ADW2 HBSAG SURFACE PROTEIN ANTIGEN
     Indication: Hepatitis B immunisation
     Route: 030
     Dates: start: 20220831, end: 20220831
  8. TOLPERISONE [Concomitant]
     Active Substance: TOLPERISONE
     Indication: Muscle spasticity
     Route: 048
     Dates: start: 20180225
  9. INFLUVAC TETRA [Concomitant]
     Active Substance: INFLUENZA VIRUS VACCINE QUADRIVALENT TYPE A+B
     Indication: Influenza immunisation
     Route: 030
     Dates: start: 20220111, end: 20220111
  10. PREGABALIN [Concomitant]
     Active Substance: PREGABALIN
     Indication: Neuralgia
     Route: 048
     Dates: start: 20211224
  11. IBUPROFEN [Concomitant]
     Active Substance: IBUPROFEN
     Indication: Migraine
     Route: 048
     Dates: start: 2010
  12. NABIXIMOLS [Concomitant]
     Active Substance: NABIXIMOLS
     Indication: Muscle spasticity
     Dosage: DEFINITION OF THE INTERVAL: AS REQUIRED
     Route: 002
     Dates: start: 20191217, end: 202002

REACTIONS (2)
  - Tonsillitis [Recovered/Resolved]
  - Coronavirus infection [Recovered/Resolved]

NARRATIVE: CASE EVENT DATE: 20220610
